FAERS Safety Report 4876688-8 (Version None)
Quarter: 2006Q1

REPORT INFORMATION
  Report Type: 
  Country: None (occurrence: None)
  Receive Date: 20060110
  Receipt Date: 20050922
  Transmission Date: 20060701
  Serious: Yes (Hospitalization)
  Sender: FDA-Public Use
  Company Number: US-MERCK-0509USA03467

PATIENT
  Age: 74 Year
  Sex: Female
  Weight: 91 kg

DRUGS (4)
  1. VIOXX [Suspect]
     Indication: OSTEOARTHRITIS
     Route: 048
     Dates: start: 20001124, end: 20040930
  2. VIOXX [Suspect]
     Indication: ARTHRITIS
     Route: 048
     Dates: start: 20001124, end: 20040930
  3. ASPIRIN [Concomitant]
     Route: 065
  4. TYLENOL [Concomitant]
     Indication: PAIN
     Route: 065

REACTIONS (4)
  - ANXIETY [None]
  - CATARACT [None]
  - MYOCARDIAL INFARCTION [None]
  - NERVOUSNESS [None]
